FAERS Safety Report 25699642 (Version 3)
Quarter: 2025Q4

REPORT INFORMATION
  Report Type: Report from Study
  Country: US (occurrence: US)
  Receive Date: 20250819
  Receipt Date: 20251231
  Transmission Date: 20260117
  Serious: No
  Sender: AVERITAS
  Company Number: US-GRUNENTHAL-2025-112768

PATIENT
  Age: 70 Year
  Sex: Female

DRUGS (2)
  1. QUTENZA [Suspect]
     Active Substance: CAPSAICIN
     Indication: Diabetic neuropathy
     Dosage: UNK UNK, ONCE
     Route: 061
     Dates: start: 20250724, end: 20250724
  2. QUTENZA [Suspect]
     Active Substance: CAPSAICIN
     Dosage: UNK UNK, ONCE
     Route: 061
     Dates: start: 20251111, end: 20251111

REACTIONS (4)
  - Therapeutic product effect decreased [Unknown]
  - Pain in extremity [Recovering/Resolving]
  - Diabetic neuropathy [Unknown]
  - Burning sensation [Recovered/Resolved]

NARRATIVE: CASE EVENT DATE: 20251101
